FAERS Safety Report 9201184 (Version 1)
Quarter: 2013Q1

REPORT INFORMATION
  Report Type: Spontaneous
  Country: US (occurrence: None)
  Receive Date: 20130327
  Receipt Date: 20130327
  Transmission Date: 20140127
  Serious: Yes (Other)
  Sender: FDA-Public Use
  Company Number: TPA2013A00662

PATIENT
  Sex: Female

DRUGS (5)
  1. ACTOS [Suspect]
     Indication: TYPE 2 DIABETES MELLITUS
     Dates: start: 201003, end: 201203
  2. METFORMIN (METFORMIN) [Concomitant]
  3. GLUCOTROL (GLIPIZIDE) [Concomitant]
  4. JANUVIA (SITAGLIPTIN PHOSPHATE) [Concomitant]
  5. VICTOZA (LIRAGLUTIDE) [Concomitant]

REACTIONS (1)
  - Bladder cancer [None]
